FAERS Safety Report 4777969-9 (Version None)
Quarter: 2005Q3

REPORT INFORMATION
  Report Type: 
  Country: None (occurrence: None)
  Receive Date: 20050921
  Receipt Date: 20050905
  Transmission Date: 20060218
  Serious: Yes (Other)
  Sender: FDA-Public Use
  Company Number: 12282

PATIENT
  Sex: Male

DRUGS (2)
  1. FLUOROURACIL [Suspect]
     Indication: COLORECTAL CANCER
  2. CALCIUM FOLINATE [Suspect]

REACTIONS (1)
  - MUSCLE TWITCHING [None]
